FAERS Safety Report 8067892-9 (Version None)
Quarter: 2012Q1

REPORT INFORMATION
  Report Type: 
  Country: None (occurrence: None)
  Receive Date: 20120124
  Receipt Date: 20110922
  Transmission Date: 20120608
  Serious: No
  Sender: FDA-Public Use
  Company Number: US-AMGEN-USASP2011041098

PATIENT
  Sex: Female

DRUGS (5)
  1. SYNTHROID [Concomitant]
  2. CALCIUM [Concomitant]
  3. MULTI-VITAMIN [Concomitant]
  4. ASPIRIN [Concomitant]
  5. PROLIA [Suspect]
     Indication: PRODUCT USED FOR UNKNOWN INDICATION
     Dosage: 60 MG, Q6MO
     Route: 058
     Dates: start: 20110218, end: 20110822

REACTIONS (4)
  - ROSACEA [None]
  - BONE PAIN [None]
  - RASH [None]
  - PSORIASIS [None]
